FAERS Safety Report 13180868 (Version 1)
Quarter: 2017Q1

REPORT INFORMATION
  Report Type: Spontaneous
  Country: US (occurrence: US)
  Receive Date: 20170202
  Receipt Date: 20170202
  Transmission Date: 20170428
  Serious: No
  Sender: FDA-Public Use
  Company Number: US-SMITH AND NEPHEW, INC-2016SMT00309

PATIENT
  Age: 77 Year
  Sex: Male
  Weight: 96.15 kg

DRUGS (6)
  1. NOVOLIN 70/30 INSULIN [Concomitant]
     Dosage: 24 DOSAGE UNITS, 2X/DAY
  2. NOVOLIN 70/30 INSULIN [Concomitant]
     Dosage: 12 UNK, 1X/DAY
  3. CARVEDILOL. [Concomitant]
     Active Substance: CARVEDILOL
     Dosage: 12.5 MG, 2X/DAY
  4. HYDROCHLOROTHIAZIDE. [Concomitant]
     Active Substance: HYDROCHLOROTHIAZIDE
     Dosage: 2 TABLETS, 1X/DAY
  5. AMLODIPINE BESYLATE. [Concomitant]
     Active Substance: AMLODIPINE BESYLATE
     Dosage: 1 DOSAGE UNITS, 1X/DAY
     Dates: start: 2015
  6. REGRANEX [Suspect]
     Active Substance: BECAPLERMIN
     Indication: WOUND
     Dosage: UNK UNK, 1X/DAY
     Route: 061
     Dates: start: 201603

REACTIONS (6)
  - Skin irritation [Recovering/Resolving]
  - Skin ulcer [Recovering/Resolving]
  - Wound complication [Not Recovered/Not Resolved]
  - Incorrect drug administration duration [Unknown]
  - Erythema [Unknown]
  - Burning sensation [Recovered/Resolved]

NARRATIVE: CASE EVENT DATE: 201603
